FAERS Safety Report 10678870 (Version 1)
Quarter: 2014Q4

REPORT INFORMATION
  Report Type: Spontaneous
  Country: US (occurrence: None)
  Receive Date: 20141224
  Receipt Date: 20141224
  Transmission Date: 20150529
  Serious: No
  Sender: FDA-Public Use
  Company Number: None

PATIENT
  Age: 73 Year
  Sex: Female

DRUGS (1)
  1. STELARA [Suspect]
     Active Substance: USTEKINUMAB
     Indication: PSORIASIS
     Dosage: 45MG EVERY 3 MONTHS
     Dates: start: 20131025, end: 20141215

REACTIONS (2)
  - Cerebrovascular accident [None]
  - Cardiac disorder [None]

NARRATIVE: CASE EVENT DATE: 20141215
